FAERS Safety Report 23462430 (Version 2)
Quarter: 2024Q1

REPORT INFORMATION
  Report Type: Spontaneous
  Country: BR (occurrence: BR)
  Receive Date: 20240131
  Receipt Date: 20240327
  Transmission Date: 20240409
  Serious: Yes (Other)
  Sender: FDA-Public Use
  Company Number: BR-002147023-NVSC2024BR015711

PATIENT
  Age: 3 Year
  Weight: 16 kg

DRUGS (1)
  1. ZOLGENSMA [Suspect]
     Active Substance: ONASEMNOGENE ABEPARVOVEC-XIOI
     Indication: Product used for unknown indication
     Dosage: UNK
     Route: 042
     Dates: start: 20240111, end: 20240111

REACTIONS (9)
  - Thrombocytopenia [Recovering/Resolving]
  - Thrombocytopenia [Unknown]
  - Haemoglobin decreased [Unknown]
  - Aspartate aminotransferase increased [Unknown]
  - Pyrexia [Unknown]
  - Leukocytosis [Unknown]
  - Chromaturia [Recovered/Resolved]
  - Proteinuria [Unknown]
  - Medication error [Unknown]

NARRATIVE: CASE EVENT DATE: 20240101
